FAERS Safety Report 9565107 (Version 2)
Quarter: 2013Q4

REPORT INFORMATION
  Report Type: Spontaneous
  Country: CN (occurrence: CN)
  Receive Date: 20130930
  Receipt Date: 20131011
  Transmission Date: 20140711
  Serious: Yes (Hospitalization)
  Sender: FDA-Public Use
  Company Number: CN-PFIZER INC-2013277008

PATIENT
  Age: 55 Year
  Sex: Female
  Weight: 50 kg

DRUGS (2)
  1. MEDROL [Suspect]
     Indication: GRANULOMATOSIS WITH POLYANGIITIS
     Dosage: 10 MG, 1X/DAY
     Route: 048
     Dates: end: 20110830
  2. MEDROL [Suspect]
     Dosage: 16 MG, 1X/DAY
     Route: 048
     Dates: start: 20110831, end: 20110905

REACTIONS (1)
  - Hyperglycaemia [Not Recovered/Not Resolved]
